FAERS Safety Report 4673728-6 (Version None)
Quarter: 2005Q2

REPORT INFORMATION
  Report Type: 
  Country: None (occurrence: None)
  Receive Date: 20050523
  Receipt Date: 20050510
  Transmission Date: 20051028
  Serious: Yes (Other)
  Sender: FDA-Public Use
  Company Number: 2005073435

PATIENT
  Age: 55 Year
  Sex: Female
  Weight: 88.4514 kg

DRUGS (1)
  1. CELEBREX [Suspect]
     Indication: FIBROMYALGIA
     Dosage: 400 (200 MG, 2 IN 1 D)
     Dates: start: 19990101, end: 20030101

REACTIONS (2)
  - KNEE ARTHROPLASTY [None]
  - TENDON RUPTURE [None]
